FAERS Safety Report 4618051-0 (Version None)
Quarter: 2005Q1

REPORT INFORMATION
  Report Type: 
  Country: None (occurrence: None)
  Receive Date: 20050322
  Receipt Date: 20050309
  Transmission Date: 20050727
  Serious: Yes (Other)
  Sender: FDA-Public Use
  Company Number: 2005042487

PATIENT
  Age: 27 Year
  Sex: Female

DRUGS (1)
  1. ZOLOFT [Suspect]
     Indication: PANIC DISORDER
     Dosage: 50 MG (50 MG, 1 IN 1 D), ORAL
     Route: 048
     Dates: start: 20020309, end: 20050309

REACTIONS (3)
  - HEADACHE [None]
  - INTRACRANIAL PRESSURE INCREASED [None]
  - VISION BLURRED [None]
